FAERS Safety Report 4344555-4 (Version None)
Quarter: 2004Q2

REPORT INFORMATION
  Report Type: 
  Country: None (occurrence: None)
  Receive Date: 20040422
  Receipt Date: 20040220
  Transmission Date: 20050107
  Serious: Yes (Hospitalization)
  Sender: FDA-Public Use
  Company Number: FR-MERCK-0402FRA00071

PATIENT
  Age: 38 Year
  Sex: Female

DRUGS (2)
  1. ETHINYL ESTRADIOL AND LEVONORGESTREL [Concomitant]
     Indication: CONTRACEPTION
     Route: 048
     Dates: end: 20040101
  2. VIOXX [Suspect]
     Route: 048
     Dates: start: 20031017, end: 20031114

REACTIONS (7)
  - BILIARY CIRRHOSIS [None]
  - BILIARY CIRRHOSIS PRIMARY [None]
  - CHOLANGIOLITIS [None]
  - CYTOLYTIC HEPATITIS [None]
  - HEPATITIS CHOLESTATIC [None]
  - JAUNDICE [None]
  - WEIGHT DECREASED [None]
